FAERS Safety Report 6795324-7 (Version None)
Quarter: 2010Q2

REPORT INFORMATION
  Report Type: 
  Country: None (occurrence: None)
  Receive Date: 20100625
  Receipt Date: 20100614
  Transmission Date: 20101027
  Serious: Yes (Hospitalization)
  Sender: FDA-Public Use
  Company Number: JP-ELI_LILLY_AND_COMPANY-JP201003000777

PATIENT
  Sex: Male
  Weight: 67.1 kg

DRUGS (13)
  1. PEMETREXED [Suspect]
     Indication: NON-SMALL CELL LUNG CANCER
     Dosage: 500 MG/M2, OTHER
     Route: 042
     Dates: start: 20091221, end: 20100203
  2. PEMETREXED [Suspect]
     Dosage: 375 MG/M2, OTHER
     Route: 042
     Dates: start: 20100324, end: 20100324
  3. CISPLATIN [Suspect]
     Indication: NON-SMALL CELL LUNG CANCER
     Dosage: 75 MG/M2, OTHER
     Route: 042
     Dates: start: 20091221, end: 20100324
  4. KERATINAMIN [Concomitant]
     Indication: DRY SKIN
     Route: 062
  5. CALONAL [Concomitant]
     Indication: PAIN
     Dates: start: 20091126
  6. SELBEX [Concomitant]
     Indication: PROPHYLAXIS AGAINST GASTROINTESTINAL ULCER
     Route: 048
     Dates: start: 20091126
  7. MAGLAX [Concomitant]
     Indication: CONSTIPATION
     Route: 048
     Dates: start: 20091126
  8. OXYCONTIN [Concomitant]
     Indication: PAIN
     Route: 048
     Dates: start: 20091210
  9. NOVAMIN [Concomitant]
     Indication: PROPHYLAXIS OF NAUSEA AND VOMITING
     Dates: start: 20100113
  10. PRIMPERAN /00041901/ [Concomitant]
     Indication: NAUSEA
     Dates: start: 20100207
  11. FAMOTIDINE [Concomitant]
     Indication: ABDOMINAL DISCOMFORT
     Route: 048
     Dates: start: 20100209
  12. HOKUNALIN [Concomitant]
     Indication: EMPHYSEMA
     Route: 062
     Dates: start: 20100223
  13. SPIRIVA [Concomitant]
     Indication: EMPHYSEMA
     Route: 055
     Dates: start: 20100223

REACTIONS (2)
  - CHOLANGITIS [None]
  - CHOLECYSTITIS [None]
